FAERS Safety Report 6348754-1 (Version None)
Quarter: 2009Q3

REPORT INFORMATION
  Report Type: 
  Country: None (occurrence: None)
  Receive Date: 20090911
  Receipt Date: 20090909
  Transmission Date: 20100115
  Serious: Yes (Other)
  Sender: FDA-Public Use
  Company Number: GB-WYE-G03559209

PATIENT
  Sex: Female
  Weight: 59.4 kg

DRUGS (3)
  1. RAPAMUNE [Suspect]
     Indication: PROPHYLAXIS AGAINST TRANSPLANT REJECTION
     Route: 048
     Dates: start: 20090120, end: 20090531
  2. RAPAMUNE [Suspect]
     Route: 048
     Dates: start: 20090601
  3. ALFACALCIDOL [Concomitant]
     Dosage: UNKNOWN

REACTIONS (2)
  - AMENORRHOEA [None]
  - IMMUNOSUPPRESSANT DRUG LEVEL INCREASED [None]
